FAERS Safety Report 9821074 (Version 2)
Quarter: 2014Q1

REPORT INFORMATION
  Report Type: Spontaneous
  Country: US (occurrence: US)
  Receive Date: 20140116
  Receipt Date: 20140214
  Transmission Date: 20141002
  Serious: No
  Sender: FDA-Public Use
  Company Number: US-ROXANE LABORATORIES, INC.-2014-RO-00066RO

PATIENT
  Sex: Female

DRUGS (11)
  1. IRBESARTAN HCT [Suspect]
     Indication: HYPERTENSION
     Route: 048
  2. TIMOLOL [Concomitant]
     Indication: GLAUCOMA
     Route: 031
  3. LATANOPROST [Concomitant]
     Indication: GLAUCOMA
     Route: 031
  4. CELEBREX [Concomitant]
     Indication: ARTHRITIS
  5. BYSTOLIC [Concomitant]
     Indication: HYPERTENSION
  6. FISH OIL [Concomitant]
  7. OXAZEPAM [Concomitant]
  8. ZYRTEC [Concomitant]
     Indication: MULTIPLE ALLERGIES
  9. ALLEGRA [Concomitant]
     Indication: MULTIPLE ALLERGIES
  10. METHOCARBAMOL [Concomitant]
  11. RELPAX [Concomitant]
     Indication: MIGRAINE

REACTIONS (2)
  - Drug ineffective [Recovered/Resolved]
  - Product quality issue [Unknown]
